FAERS Safety Report 11720859 (Version 2)
Quarter: 2015Q4

REPORT INFORMATION
  Report Type: Spontaneous
  Country: US (occurrence: US)
  Receive Date: 20151110
  Receipt Date: 20151223
  Transmission Date: 20160304
  Serious: Yes (Other)
  Sender: FDA-Public Use
  Company Number: US-PFIZER INC-2015382374

PATIENT
  Sex: Male

DRUGS (16)
  1. POTASSIUM CHLORIDE. [Concomitant]
     Active Substance: POTASSIUM CHLORIDE
     Dosage: 20 MEQ, 2X/DAY
     Route: 042
  2. DICLOFENAC SODIUM. [Concomitant]
     Active Substance: DICLOFENAC SODIUM
     Dosage: 1 GTT, 2X/DAY (0.1 % SOLUTION 1 DROP)
  3. VITAMIN D3 [Concomitant]
     Active Substance: CHOLECALCIFEROL
     Dosage: 2000 IU, 1X/DAY
  4. ASPIRIN. [Concomitant]
     Active Substance: ASPIRIN
     Indication: CORONARY ARTERY DISEASE
     Dosage: 81 MG, UNK
  5. DICLOFENAC SODIUM. [Concomitant]
     Active Substance: DICLOFENAC SODIUM
     Dosage: 0.1 %, 2X/DAY (1 DROP INTO AFFECTED EYE)
  6. LEVOTHYROXINE SODIUM. [Concomitant]
     Active Substance: LEVOTHYROXINE SODIUM
     Dosage: UNK UNK, 1X/DAY (75 MCG TABLET 1.5 TABLET ON MON, 1 ALL OTHER DAYS)
  7. LEVOTHYROXINE SODIUM. [Concomitant]
     Active Substance: LEVOTHYROXINE SODIUM
     Dosage: 75 UG, UNK (1.5 TABLET ON MON, 1 ALL OTHER DAYS ONCE A DAY)
  8. ECOTRIN LOW STRENGTH 81 MG [Concomitant]
     Dosage: 81 MG, 1X/DAY
     Route: 048
  9. LUTEIN [Concomitant]
     Active Substance: LUTEIN
     Dosage: 6 MG, 1X/DAY (WITH A MEAL)
  10. LISINOPRIL + HIDROCLOROTIAZIDA [Concomitant]
     Active Substance: HYDROCHLOROTHIAZIDE\LISINOPRIL
     Indication: HYPERTENSION
     Dosage: 20-25 MG, 1 TABLET, 2X/DAY
  11. ATORVASTATIN CALCIUM. [Concomitant]
     Active Substance: ATORVASTATIN CALCIUM
     Indication: TYPE V HYPERLIPIDAEMIA
     Dosage: 10 MG, 1X/DAY
  12. BALSALAZIDE DISODIUM. [Concomitant]
     Active Substance: BALSALAZIDE DISODIUM
     Dosage: 750 MG, 3X/DAY
  13. EPLERENONE. [Suspect]
     Active Substance: EPLERENONE
     Indication: HYPERTENSION
     Dosage: 25 MG, 2X/DAY
     Route: 048
  14. VERAPAMIL HCL [Concomitant]
     Active Substance: VERAPAMIL HYDROCHLORIDE
     Indication: HYPERTENSION
     Dosage: 240 MG, 1X/DAY
     Route: 048
  15. FLUTICASONE PROPIONATE. [Concomitant]
     Active Substance: FLUTICASONE PROPIONATE
     Dosage: 1 DF, AS NEEDED (50 MCG/ACT SUSPENSION 1 SPRAY IN EACH NOSTRIL)
  16. OMEPRAZOLE. [Concomitant]
     Active Substance: OMEPRAZOLE
     Dosage: 20 MG, AS NEEDED

REACTIONS (7)
  - Left ventricular hypertrophy [Unknown]
  - Drug effect incomplete [Unknown]
  - Pulmonary hypertension [Unknown]
  - Condition aggravated [Unknown]
  - Rash pruritic [Recovering/Resolving]
  - Drug hypersensitivity [Unknown]
  - Gynaecomastia [Recovering/Resolving]
